FAERS Safety Report 4408525-X (Version None)
Quarter: 2004Q3

REPORT INFORMATION
  Report Type: 
  Country: None (occurrence: None)
  Receive Date: 20040723
  Receipt Date: 20040603
  Transmission Date: 20050211
  Serious: Yes (Hospitalization)
  Sender: FDA-Public Use
  Company Number: 2004UW10790

PATIENT
  Sex: Female

DRUGS (3)
  1. CRESTOR [Suspect]
     Dates: start: 20040101
  2. COUMADIN [Concomitant]
  3. ZOCOR [Concomitant]

REACTIONS (3)
  - BLOOD CREATINE PHOSPHOKINASE INCREASED [None]
  - MYALGIA [None]
  - PYREXIA [None]
